FAERS Safety Report 6301943-4 (Version None)
Quarter: 2009Q3

REPORT INFORMATION
  Report Type: 
  Country: None (occurrence: None)
  Receive Date: 20090807
  Receipt Date: 20090805
  Transmission Date: 20100115
  Serious: Yes (Hospitalization)
  Sender: FDA-Public Use
  Company Number: ES-WYE-G03265409

PATIENT
  Age: 62 Year
  Sex: Male

DRUGS (2)
  1. TYGACIL [Suspect]
     Indication: PERITONITIS BACTERIAL
     Dates: start: 20090220, end: 20090304
  2. TYGACIL [Suspect]
     Indication: ENTEROCOCCAL INFECTION

REACTIONS (3)
  - DRUG INEFFECTIVE [None]
  - ENTEROCOCCAL BACTERAEMIA [None]
  - ENTEROCOCCAL INFECTION [None]
